FAERS Safety Report 5335691-4 (Version None)
Quarter: 2007Q1

REPORT INFORMATION
  Report Type: 
  Country: None (occurrence: None)
  Receive Date: 20070322
  Receipt Date: 20070126
  Transmission Date: 20070707
  Serious: No
  Sender: FDA-Public Use
  Company Number: 2007US000224

PATIENT
  Sex: Male

DRUGS (6)
  1. VESICARE [Suspect]
     Indication: POLLAKIURIA
     Dosage: 10 MG, UNK, ORAL
     Route: 048
     Dates: start: 20070101, end: 20070101
  2. ASPIRIN [Concomitant]
  3. CARDIZEM [Concomitant]
  4. PLAVIX [Concomitant]
  5. TOPROL-XL [Concomitant]
  6. PRAVACHOL [Concomitant]

REACTIONS (2)
  - BALANCE DISORDER [None]
  - DRY MOUTH [None]
